FAERS Safety Report 20991346 (Version 1)
Quarter: 2022Q2

REPORT INFORMATION
  Report Type: Spontaneous
  Country: US (occurrence: US)
  Receive Date: 20220622
  Receipt Date: 20220622
  Transmission Date: 20220721
  Serious: Yes (Other)
  Sender: FDA-Public Use
  Company Number: US-SA-SAC20220610001880

PATIENT
  Age: 75 Year
  Sex: Male
  Weight: 65.77 kg

DRUGS (8)
  1. LANTUS [Suspect]
     Active Substance: INSULIN GLARGINE
     Dosage: 15 U
  2. LEVEMIR [Suspect]
     Active Substance: INSULIN DETEMIR
     Dosage: 15 U
     Dates: start: 20110328
  3. COMIRNATY [Suspect]
     Active Substance: TOZINAMERAN
     Dosage: UNK, FIRST DOSES
     Dates: start: 20210315
  4. COMIRNATY [Suspect]
     Active Substance: TOZINAMERAN
     Dosage: UNK, SECOND DOSE
     Dates: start: 20210405
  5. COMIRNATY [Suspect]
     Active Substance: TOZINAMERAN
     Dosage: UNK, BOOSTER DOSE
     Dates: start: 20211026
  6. COMIRNATY [Suspect]
     Active Substance: TOZINAMERAN
     Dosage: UNK, BOOSTER DOSE
     Dates: start: 20220422
  7. NOVOLOG [Concomitant]
     Active Substance: INSULIN ASPART
     Indication: Diabetes mellitus
     Dosage: UNK
  8. HUMALOG [Concomitant]
     Active Substance: INSULIN LISPRO
     Indication: Diabetes mellitus
     Dosage: UNK

REACTIONS (7)
  - Diabetic coma [Recovered/Resolved]
  - Road traffic accident [Recovered/Resolved]
  - COVID-19 [Recovered/Resolved]
  - Dyspnoea [Recovered/Resolved]
  - Heart rate irregular [Recovered/Resolved]
  - Nasopharyngitis [Unknown]
  - Blood glucose decreased [Not Recovered/Not Resolved]

NARRATIVE: CASE EVENT DATE: 20210501
